FAERS Safety Report 14532565 (Version 1)
Quarter: 2018Q1

REPORT INFORMATION
  Report Type: Spontaneous
  Country: US (occurrence: US)
  Receive Date: 20180213
  Receipt Date: 20180213
  Transmission Date: 20180509
  Serious: No
  Sender: FDA-Public Use
  Company Number: None

PATIENT
  Sex: Female

DRUGS (2)
  1. ACTEMRA [Suspect]
     Active Substance: TOCILIZUMAB
  2. FORTEO [Suspect]
     Active Substance: TERIPARATIDE
     Indication: SPINAL COMPRESSION FRACTURE
     Route: 058
     Dates: start: 201711

REACTIONS (3)
  - Urinary tract infection [None]
  - Therapy cessation [None]
  - Pain [None]
